FAERS Safety Report 4840364-8 (Version None)
Quarter: 2005Q4

REPORT INFORMATION
  Report Type: 
  Country: None (occurrence: None)
  Receive Date: 20051025
  Receipt Date: 20040927
  Transmission Date: 20060501
  Serious: Yes (Other)
  Sender: FDA-Public Use
  Company Number: US-JNJFOC-20040906904

PATIENT
  Age: 48 Year
  Sex: Female

DRUGS (1)
  1. FLEXERIL [Suspect]
     Indication: BACK PAIN
     Dosage: 5 MG, 1 IN  2 TOTAL, ORAL
     Route: 048
     Dates: start: 20040702, end: 20040704

REACTIONS (4)
  - ABDOMINAL PAIN [None]
  - ASTHENIA [None]
  - CONDITION AGGRAVATED [None]
  - CONSTIPATION [None]
